FAERS Safety Report 6883622-8 (Version None)
Quarter: 2010Q3

REPORT INFORMATION
  Report Type: 
  Country: None (occurrence: None)
  Receive Date: 20100729
  Receipt Date: 20100716
  Transmission Date: 20110219
  Serious: Yes (Hospitalization)
  Sender: FDA-Public Use
  Company Number: A0789779A

PATIENT
  Age: 64 Year
  Sex: Male

DRUGS (13)
  1. AVANDIA [Suspect]
     Indication: DIABETES MELLITUS
     Dosage: 8MG PER DAY
     Route: 048
     Dates: start: 20050101, end: 20070501
  2. AVANDARYL [Suspect]
     Indication: DIABETES MELLITUS
     Route: 048
  3. AVANDAMET [Suspect]
  4. GLUCOPHAGE [Concomitant]
  5. CRESTOR [Concomitant]
  6. FORTAMET [Concomitant]
  7. LANTUS [Concomitant]
  8. DIOVAN [Concomitant]
  9. PLAVIX [Concomitant]
  10. ASPIRIN [Concomitant]
  11. ATENOLOL [Concomitant]
  12. CADUET [Concomitant]
  13. NITROGLYCERIN [Concomitant]

REACTIONS (3)
  - MYOCARDIAL INFARCTION [None]
  - MYOCARDIAL ISCHAEMIA [None]
  - TRANSIENT ISCHAEMIC ATTACK [None]
